FAERS Safety Report 25550440 (Version 5)
Quarter: 2025Q4

REPORT INFORMATION
  Report Type: Spontaneous
  Country: US (occurrence: US)
  Receive Date: 20250714
  Receipt Date: 20251201
  Transmission Date: 20260118
  Serious: No
  Sender: SANOFI AVENTIS
  Company Number: US-SA-2025SA194776

PATIENT
  Age: 44 Year
  Sex: Male

DRUGS (2)
  1. ALTUVIIIO [Suspect]
     Active Substance: EFANESOCTOCOG ALFA
     Indication: Haemorrhage prophylaxis
     Dosage: INFUSE 4,850 UNITS (+/- 10%) ONCE WEEKLY FOR BREAKTHROUGH BLEEDS
     Route: 042
  2. ALTUVIIIO [Suspect]
     Active Substance: EFANESOCTOCOG ALFA
     Dosage: INFUSE 4,850 UNITS (+/- 10%) AS NEEDED FOR BREAKTHROUGH BLEEDS
     Route: 042

REACTIONS (4)
  - Haemorrhage [Recovered/Resolved]
  - Spontaneous haemorrhage [Unknown]
  - Haemorrhage [Recovered/Resolved]
  - Haemorrhage [Unknown]

NARRATIVE: CASE EVENT DATE: 20250525
